FAERS Safety Report 6250440-3 (Version None)
Quarter: 2009Q2

REPORT INFORMATION
  Report Type: 
  Country: None (occurrence: None)
  Receive Date: 20090630
  Receipt Date: 20090617
  Transmission Date: 20091009
  Serious: Yes (Hospitalization, Other)
  Sender: FDA-Public Use
  Company Number: PHHY2009JP23023

PATIENT
  Age: 70 Year
  Sex: Female

DRUGS (2)
  1. NEORAL [Suspect]
     Indication: MYASTHENIA GRAVIS
     Dosage: 150 MG/DAY
     Route: 048
     Dates: start: 20070601, end: 20080701
  2. PREDNISOLONE [Suspect]
     Indication: MYASTHENIA GRAVIS
     Dosage: UNK
     Route: 048

REACTIONS (3)
  - DIABETES MELLITUS [None]
  - DRUG INEFFECTIVE [None]
  - MYASTHENIA GRAVIS [None]
